FAERS Safety Report 21696732 (Version 2)
Quarter: 2022Q4

REPORT INFORMATION
  Report Type: Spontaneous
  Country: US (occurrence: US)
  Receive Date: 20221207
  Receipt Date: 20221213
  Transmission Date: 20230113
  Serious: Yes (Other)
  Sender: FDA-Public Use
  Company Number: None

PATIENT
  Age: 60 Year
  Sex: Female

DRUGS (1)
  1. FUROSEMIDE [Suspect]
     Active Substance: FUROSEMIDE
     Indication: Chronic kidney disease
     Dosage: UNK
     Route: 065

REACTIONS (6)
  - Hyperparathyroidism primary [Unknown]
  - Unmasking of previously unidentified disease [Unknown]
  - Parathyroid tumour benign [Unknown]
  - Blood creatinine increased [Recovered/Resolved]
  - Blood creatinine abnormal [Recovered/Resolved]
  - Hypovolaemia [Recovered/Resolved]
